FAERS Safety Report 8923283 (Version 2)
Quarter: 2013Q1

REPORT INFORMATION
  Report Type: Spontaneous
  Country: PR (occurrence: PR)
  Receive Date: 20121123
  Receipt Date: 20130207
  Transmission Date: 20140127
  Serious: Yes (Hospitalization)
  Sender: FDA-Public Use
  Company Number: PR-ABBOTT-12P-131-1010936-00

PATIENT
  Age: 62 Year
  Sex: Male
  Weight: 95.34 kg

DRUGS (14)
  1. HUMIRA [Suspect]
     Indication: RHEUMATOID ARTHRITIS
     Route: 058
     Dates: start: 2012, end: 20121106
  2. HUMIRA [Suspect]
     Route: 058
     Dates: start: 20121210
  3. NOVOLOG [Concomitant]
     Indication: DIABETES MELLITUS
     Route: 058
  4. LEVEMIR [Concomitant]
     Indication: DIABETES MELLITUS
     Dosage: AT BEDTIME
     Route: 058
  5. ALDACTONE [Concomitant]
     Indication: HYPERTENSION
     Route: 048
  6. ISORDIL [Concomitant]
     Indication: HYPERTENSION
     Route: 048
  7. ZAROXOLYN [Concomitant]
     Indication: HYPERTENSION
     Route: 048
  8. COREG [Concomitant]
     Indication: HYPERTENSION
     Route: 048
  9. LIPITOR [Concomitant]
     Indication: HYPERCHOLESTEROLAEMIA
     Route: 048
  10. PLAVIX [Concomitant]
     Indication: PRODUCT USED FOR UNKNOWN INDICATION
     Route: 048
  11. ASPIRIN [Concomitant]
     Route: 048
  12. NEURONTIN [Concomitant]
     Indication: DIABETIC NEUROPATHY
     Route: 048
  13. LACTULOSA [Concomitant]
     Indication: CONSTIPATION
     Route: 048
  14. KLONOPIN [Concomitant]
     Indication: DEPRESSION
     Route: 048

REACTIONS (5)
  - Gallbladder disorder [Unknown]
  - Pulmonary oedema [Recovered/Resolved]
  - Constipation [Recovering/Resolving]
  - Cough [Recovered/Resolved]
  - Fatigue [Recovered/Resolved]
